FAERS Safety Report 7374927-5 (Version None)
Quarter: 2011Q1

REPORT INFORMATION
  Report Type: 
  Country: None (occurrence: None)
  Receive Date: 20110325
  Receipt Date: 20110310
  Transmission Date: 20110831
  Serious: Yes (Other)
  Sender: FDA-Public Use
  Company Number: PHHY2011US17519

PATIENT
  Sex: Female

DRUGS (12)
  1. SYNTHROID [Concomitant]
  2. VITAMIN D [Concomitant]
  3. COQ10 [Concomitant]
     Dosage: 100 MG, UNK
  4. AGGRENOX [Concomitant]
  5. LIPITOR [Concomitant]
     Dosage: 10 MG, UNK
  6. BIOTIN [Concomitant]
  7. FISH OIL [Concomitant]
  8. B12 DOTS [Concomitant]
     Dosage: 500 MG, UNK
  9. TEKTURNA [Suspect]
     Indication: HYPERTENSION
     Dosage: 150 MG, DAILY
     Route: 048
     Dates: start: 20110224, end: 20110301
  10. LISINOPRIL [Concomitant]
     Dosage: 40 MG, UNK
  11. CRAN-MAX VEGGIE [Concomitant]
     Dosage: 500 MG, DAILY
     Route: 048
  12. PRILOSEC [Concomitant]

REACTIONS (5)
  - MUSCLE SPASMS [None]
  - BOWEL MOVEMENT IRREGULARITY [None]
  - COLD SWEAT [None]
  - DIARRHOEA HAEMORRHAGIC [None]
  - PRESYNCOPE [None]
